FAERS Safety Report 22309932 (Version 4)
Quarter: 2023Q2

REPORT INFORMATION
  Report Type: Report from Study
  Country: NL (occurrence: NL)
  Receive Date: 20230511
  Receipt Date: 20230615
  Transmission Date: 20230721
  Serious: Yes (Hospitalization)
  Sender: FDA-Public Use
  Company Number: NL-002147023-NVSC2023NL103344

PATIENT
  Age: 71 Year
  Sex: Female

DRUGS (31)
  1. PIQRAY [Suspect]
     Active Substance: ALPELISIB
     Indication: Hormone receptor positive HER2 negative breast cancer
     Dosage: 300 MG, QD
     Route: 048
     Dates: start: 20230424, end: 20230503
  2. FULVESTRANT [Concomitant]
     Active Substance: FULVESTRANT
     Indication: Product used for unknown indication
     Dosage: 250 MG= 5ML (50MG/ML) 1X PER TIME PER 4 WEEKS 2
     Route: 030
     Dates: start: 20220901
  3. FULVESTRANT [Concomitant]
     Active Substance: FULVESTRANT
     Dosage: 500 MG, Q4W
     Route: 030
     Dates: start: 20230424
  4. FULVESTRANT [Concomitant]
     Active Substance: FULVESTRANT
     Dosage: 250 MG= 5ML (50MG/ML) 1X PER TIME PER 4 WEEKS 2
     Route: 030
     Dates: start: 20230503, end: 20230508
  5. FENTANYL [Concomitant]
     Active Substance: FENTANYL
     Indication: Product used for unknown indication
     Dosage: 50 UG, 1X PER 3 DAYS 1 PATCH
     Route: 062
     Dates: start: 20221114
  6. FENTANYL [Concomitant]
     Active Substance: FENTANYL
     Dosage: 75 UG, 1X PER DAY PER 2 DAYS 1
     Route: 062
     Dates: start: 20230411
  7. FENTANYL [Concomitant]
     Active Substance: FENTANYL
     Dosage: 75 UG, 1X PER DAY PER 2 DAYS 1
     Route: 062
     Dates: start: 20230503, end: 20230508
  8. PREDNISOLONE [Concomitant]
     Active Substance: PREDNISOLONE
     Indication: Product used for unknown indication
     Dosage: 5 MG, 1 X PER DAY 1.5 TABLETS WITH REDUCTION SCHEDULE
     Route: 048
     Dates: start: 20230130
  9. PREDNISOLONE [Concomitant]
     Active Substance: PREDNISOLONE
     Dosage: 5 MG, 1 X PER DAY 1.5 TABLETS WITH REDUCTION SCHEDULE
     Route: 048
     Dates: start: 20230503, end: 20230508
  10. HYDROXYCHLOROQUINE [Concomitant]
     Active Substance: HYDROXYCHLOROQUINE
     Indication: Product used for unknown indication
     Dosage: 200 MG, QD (1X PER DAY 1 TABLET)
     Route: 048
     Dates: start: 20221115
  11. HYDROXYCHLOROQUINE [Concomitant]
     Active Substance: HYDROXYCHLOROQUINE
     Dosage: 200 MG, QD (1X PER DAY 1 TABLET)
     Route: 048
     Dates: start: 20230503, end: 20230508
  12. FUROSEMIDE [Concomitant]
     Active Substance: FUROSEMIDE
     Indication: Product used for unknown indication
     Dosage: 20 MG
     Route: 048
     Dates: start: 20220725
  13. RISEDRONSAEURE [Concomitant]
     Indication: Product used for unknown indication
     Dosage: 35 MG, 1 X PER WEEK 1 TABLET ON EMPTY STOMACH
     Route: 048
     Dates: start: 20220415
  14. RISEDRONSAEURE [Concomitant]
     Dosage: 35 MG, 1 X PER WEEK 1 TABLET ON EMPTY STOMACH
     Route: 048
     Dates: start: 20230503, end: 20230508
  15. LANETTE WAX [Concomitant]
     Indication: Product used for unknown indication
     Dosage: UNK
     Route: 065
     Dates: start: 20230504, end: 20230508
  16. INSULIN ASPART [Concomitant]
     Active Substance: INSULIN ASPART
     Indication: Product used for unknown indication
     Dosage: UNK
     Route: 058
     Dates: start: 20230503, end: 20230508
  17. LEVOTHYROXINENATRIUM TEVA [Concomitant]
     Indication: Product used for unknown indication
     Dosage: 137 UG, QD (1X PER DAY 1 TABLET TAKE WITH WATER)
     Route: 048
     Dates: start: 20220324
  18. LEVOTHYROXINENATRIUM TEVA [Concomitant]
     Dosage: 137 UG, QD (1X PER DAY 1 TABLET TAKE WITH WATER)
     Route: 048
     Dates: start: 20230504, end: 20230508
  19. SIMVASTATIN [Concomitant]
     Active Substance: SIMVASTATIN
     Indication: Product used for unknown indication
     Dosage: 40 MG, QD (1X PER DAY 1 TABLET)
     Route: 048
     Dates: start: 20220324
  20. SIMVASTATIN [Concomitant]
     Active Substance: SIMVASTATIN
     Dosage: 40 MG, QD (1X PER DAY 1 TABLET)
     Route: 048
     Dates: start: 20230503, end: 20230508
  21. CITALOPRAM [Concomitant]
     Active Substance: CITALOPRAM HYDROBROMIDE
     Indication: Product used for unknown indication
     Dosage: 40 MG, QD (1 X PER DAY 1 TABLET)
     Route: 048
     Dates: start: 20230324
  22. CITALOPRAM [Concomitant]
     Active Substance: CITALOPRAM HYDROBROMIDE
     Dosage: 40 MG, QD (1 X PER DAY 1 TABLET)
     Route: 048
     Dates: start: 20230503, end: 20230508
  23. ENALAPRIL [Concomitant]
     Active Substance: ENALAPRIL
     Indication: Product used for unknown indication
     Dosage: 20 MG, QD (1 X PER DAY 1 TABLET)
     Route: 048
     Dates: start: 20220324
  24. OXAZEPAM [Concomitant]
     Active Substance: OXAZEPAM
     Indication: Product used for unknown indication
     Dosage: 10 MG
     Route: 048
     Dates: start: 20220210
  25. OXAZEPAM [Concomitant]
     Active Substance: OXAZEPAM
     Dosage: 10 MG
     Route: 048
     Dates: start: 20230503, end: 20230508
  26. OMEPRAZOLE [Concomitant]
     Active Substance: OMEPRAZOLE
     Indication: Product used for unknown indication
     Dosage: 40 MG, QD (1 X PER DAY 1 TABLET)
     Route: 048
     Dates: start: 20211127
  27. OMEPRAZOLE [Concomitant]
     Active Substance: OMEPRAZOLE
     Dosage: 40 MG, QD (1 X PER DAY 1 TABLET)
     Route: 048
     Dates: start: 20230503, end: 20230508
  28. METFORMIN [Concomitant]
     Active Substance: METFORMIN HYDROCHLORIDE
     Indication: Product used for unknown indication
     Dosage: UNK
     Route: 065
     Dates: start: 20230504, end: 20230508
  29. VASELINE PURE [Concomitant]
     Active Substance: PETROLATUM
     Indication: Product used for unknown indication
     Dosage: UNK
     Route: 065
  30. ACETAMINOPHEN [Concomitant]
     Active Substance: ACETAMINOPHEN
     Indication: Product used for unknown indication
     Dosage: UNK
     Route: 065
     Dates: start: 20230503, end: 20230508
  31. NADROPARIN [Concomitant]
     Active Substance: NADROPARIN
     Indication: Product used for unknown indication
     Dosage: UNK
     Route: 065
     Dates: start: 20230503, end: 20230508

REACTIONS (3)
  - Anaphylactic reaction [Recovered/Resolved]
  - Hyperglycaemia [Recovered/Resolved]
  - Dehydration [Recovered/Resolved]

NARRATIVE: CASE EVENT DATE: 20230503
